FAERS Safety Report 6463572-1 (Version None)
Quarter: 2009Q4

REPORT INFORMATION
  Report Type: 
  Country: None (occurrence: None)
  Receive Date: 20091201
  Receipt Date: 20091123
  Transmission Date: 20100525
  Serious: Yes (Other)
  Sender: FDA-Public Use
  Company Number: US-ASTRAZENECA-2009UW03129

PATIENT
  Age: 34 Year
  Sex: Male
  Weight: 113.4 kg

DRUGS (10)
  1. SEROQUEL [Suspect]
     Indication: MENTAL DISORDER
     Route: 048
     Dates: start: 20000101, end: 20070101
  2. ABILIFY [Concomitant]
     Dates: start: 20030101, end: 20090101
  3. GEODON [Concomitant]
     Dates: start: 20030101, end: 20090101
  4. HALDOL [Concomitant]
     Dates: start: 20030101, end: 20090101
  5. NAVANE [Concomitant]
     Dates: start: 20030101, end: 20090101
  6. RISPERDAL [Concomitant]
  7. STELAZINE [Concomitant]
  8. THORAZINE [Concomitant]
     Dates: start: 20030101, end: 20090101
  9. ZYPREXA/SYMBYAX [Concomitant]
     Dates: start: 20030101, end: 20090101
  10. SELEXA [Concomitant]
     Dosage: 50 MG/DAY

REACTIONS (3)
  - ADVERSE DRUG REACTION [None]
  - PANCREATITIS [None]
  - TYPE 2 DIABETES MELLITUS [None]
